FAERS Safety Report 9205331 (Version 1)
Quarter: 2013Q2

REPORT INFORMATION
  Report Type: Spontaneous
  Country: DE (occurrence: DE)
  Receive Date: 20130402
  Receipt Date: 20130402
  Transmission Date: 20140414
  Serious: Yes (Other)
  Sender: FDA-Public Use
  Company Number: DE-009507513-1303DEU012702

PATIENT
  Age: 49 Year
  Sex: Female

DRUGS (1)
  1. REMERGIL SOLTAB [Suspect]
     Indication: SLEEP DISORDER
     Dosage: UNK
     Route: 048
     Dates: start: 2003, end: 2013

REACTIONS (3)
  - Pruritus [Unknown]
  - Off label use [Unknown]
  - Hypersensitivity [Unknown]
